FAERS Safety Report 9992598 (Version 2)
Quarter: 2014Q2

REPORT INFORMATION
  Report Type: Report from Study
  Country: US (occurrence: US)
  Receive Date: 20140310
  Receipt Date: 20140414
  Transmission Date: 20141212
  Serious: Yes (Life-Threatening, Hospitalization)
  Sender: FDA-Public Use
  Company Number: PHEH2014US004585

PATIENT
  Sex: Female
  Weight: 75.79 kg

DRUGS (1)
  1. ZOMETA [Suspect]
     Indication: LUNG CARCINOMA CELL TYPE UNSPECIFIED STAGE 0
     Dosage: 4 MG, EVERY 4 WEEKS
     Route: 042
     Dates: start: 20130801, end: 20131210

REACTIONS (1)
  - Condition aggravated [Not Recovered/Not Resolved]
